FAERS Safety Report 5012208-5 (Version None)
Quarter: 2006Q2

REPORT INFORMATION
  Report Type: 
  Country: None (occurrence: None)
  Receive Date: 20060524
  Receipt Date: 20060314
  Transmission Date: 20061013
  Serious: Yes (Death)
  Sender: FDA-Public Use
  Company Number: T200600319

PATIENT
  Age: 39 Year

DRUGS (3)
  1. MEPERIDINE HCL [Suspect]
  2. PROCHLORPERAZINE MALEATE [Suspect]
  3. AMITRIPTYLINE HCL [Suspect]

REACTIONS (4)
  - CARDIAC ARREST [None]
  - COMPLETED SUICIDE [None]
  - INTENTIONAL DRUG MISUSE [None]
  - RESPIRATORY ARREST [None]
